FAERS Safety Report 23601834 (Version 4)
Quarter: 2024Q2

REPORT INFORMATION
  Report Type: Other
  Country: US (occurrence: None)
  Receive Date: 20240306
  Receipt Date: 20240517
  Transmission Date: 20240716
  Serious: Yes (Hospitalization, Other)
  Sender: FDA-Public Use
  Company Number: US-ROCHE-3514247

PATIENT
  Age: 56 Year
  Sex: Female
  Weight: 66.284 kg

DRUGS (13)
  1. OCREVUS [Suspect]
     Active Substance: OCRELIZUMAB
     Indication: Relapsing-remitting multiple sclerosis
     Dosage: DATE OF TREATMENT 10/SEP/2019 LAST DOSE OF OCREVUS WAS ON 03/NOV/2023. MOST RECENT DOSE 03/MAY/2024.
     Route: 042
     Dates: start: 20190722, end: 20200722
  2. OCREVUS [Suspect]
     Active Substance: OCRELIZUMAB
     Indication: Secondary progressive multiple sclerosis
  3. ACYCLOVIR [Concomitant]
     Active Substance: ACYCLOVIR
  4. ARMODAFINIL [Concomitant]
     Active Substance: ARMODAFINIL
  5. BUPROPION [Concomitant]
     Active Substance: BUPROPION
  6. HYDROCHLOROTHIAZIDE [Concomitant]
     Active Substance: HYDROCHLOROTHIAZIDE
  7. MIRTAZAPINE [Concomitant]
     Active Substance: MIRTAZAPINE
  8. LEVOTHYROXINE [Concomitant]
     Active Substance: LEVOTHYROXINE\LEVOTHYROXINE SODIUM
  9. TIZANIDINE [Concomitant]
     Active Substance: TIZANIDINE
  10. VALACYCLOVIR HYDROCHLORIDE [Concomitant]
     Active Substance: VALACYCLOVIR HYDROCHLORIDE
  11. TYSABRI [Concomitant]
     Active Substance: NATALIZUMAB
  12. TECFIDERA [Concomitant]
     Active Substance: DIMETHYL FUMARATE
  13. COPAXONE [Concomitant]
     Active Substance: GLATIRAMER ACETATE

REACTIONS (15)
  - COVID-19 pneumonia [Recovering/Resolving]
  - Illness [Unknown]
  - COVID-19 [Recovered/Resolved]
  - Influenza [Recovered/Resolved]
  - Muscular weakness [Unknown]
  - Fall [Unknown]
  - Asthenia [Unknown]
  - Dyspnoea [Unknown]
  - Blood immunoglobulin G decreased [Not Recovered/Not Resolved]
  - Respiratory failure [Unknown]
  - Amnesia [Not Recovered/Not Resolved]
  - Mental impairment [Not Recovered/Not Resolved]
  - Blood pressure decreased [Not Recovered/Not Resolved]
  - Urinary tract infection [Unknown]
  - Gait disturbance [Not Recovered/Not Resolved]

NARRATIVE: CASE EVENT DATE: 20231001
